FAERS Safety Report 6914561-1 (Version None)
Quarter: 2010Q3

REPORT INFORMATION
  Report Type: 
  Country: None (occurrence: None)
  Receive Date: 20100809
  Receipt Date: 20100728
  Transmission Date: 20110219
  Serious: Yes (Other)
  Sender: FDA-Public Use
  Company Number: US-PFIZER INC-2010055313

PATIENT
  Sex: Female

DRUGS (7)
  1. LYRICA [Suspect]
     Dosage: UNK
     Dates: end: 20100401
  2. GABAPENTIN [Suspect]
     Dosage: UNK
     Dates: start: 20100101
  3. BUSPAR [Suspect]
  4. ACETYLSALICYLIC ACID [Concomitant]
  5. ALLEGRA [Concomitant]
     Dosage: 180 MG, DAILY
     Route: 048
  6. LEVOTHYROXINE SODIUM [Concomitant]
     Dosage: 100 UG, DAILY
     Route: 048
  7. HYDROCHLOROTHIAZIDE [Concomitant]
     Dosage: 25 MG, DAILY
     Route: 048

REACTIONS (19)
  - ANXIETY [None]
  - CARPAL TUNNEL SYNDROME [None]
  - CERVICAL SPINAL STENOSIS [None]
  - DEPRESSION [None]
  - DRUG INEFFECTIVE [None]
  - DYSGEUSIA [None]
  - ERYTHEMA [None]
  - EYE DISORDER [None]
  - FATIGUE [None]
  - HYPOAESTHESIA [None]
  - HYPOKALAEMIA [None]
  - INFLUENZA LIKE ILLNESS [None]
  - MUSCLE RIGIDITY [None]
  - OEDEMA PERIPHERAL [None]
  - PAIN [None]
  - PERIPHERAL COLDNESS [None]
  - TREMOR [None]
  - VAGINAL DISCHARGE [None]
  - WEIGHT DECREASED [None]
